FAERS Safety Report 8263246 (Version 2)
Quarter: 2012Q4

REPORT INFORMATION
  Report Type: 
  Country: GB (occurrence: GB)
  Receive Date: 20111125
  Receipt Date: 20121019
  Transmission Date: 20130627
  Serious: Yes (Other)
  Sender: FDA-Public Use
  Company Number: GB-AMGEN-GBRSP2011061577

PATIENT
  Age: 66 Year
  Sex: Male
  Weight: 93 kg

DRUGS (3)
  1. ENBREL [Suspect]
     Indication: RHEUMATOID ARTHRITIS
     Dosage: 25 mg, 2x/week
     Route: 058
     Dates: start: 20040803, end: 20110103
  2. HUMIRA [Suspect]
     Indication: RHEUMATOID ARTHRITIS
     Dosage: 40 mg once every 2 weeks
     Dates: start: 20110103, end: 20111028
  3. DICLOFENAC [Concomitant]
     Dosage: UNK

REACTIONS (4)
  - Prostate cancer stage 0 [Unknown]
  - Pollakiuria [Unknown]
  - Micturition urgency [Unknown]
  - Prostatic specific antigen increased [Unknown]
